FAERS Safety Report 5339952-4 (Version None)
Quarter: 2007Q2

REPORT INFORMATION
  Report Type: 
  Country: None (occurrence: None)
  Receive Date: 20070531
  Receipt Date: 20070524
  Transmission Date: 20071010
  Serious: Yes (Disabling)
  Sender: FDA-Public Use
  Company Number: US-BAYER-200710654BCC

PATIENT
  Age: 72 Year
  Sex: Male
  Weight: 93 kg

DRUGS (4)
  1. ALEVE [Suspect]
     Indication: ARTHRALGIA
     Dosage: TOTAL DAILY DOSE: 440 MG  UNIT DOSE: 220 MG
     Route: 048
     Dates: start: 20060101
  2. NEXIUM [Concomitant]
     Dates: start: 20061201
  3. NASONEX [Concomitant]
     Dates: start: 20061201
  4. ASPIRIN [Concomitant]
     Dates: start: 20020101

REACTIONS (1)
  - BALANCE DISORDER [None]
